FAERS Safety Report 24951987 (Version 1)
Quarter: 2025Q1

REPORT INFORMATION
  Report Type: Spontaneous
  Country: US (occurrence: US)
  Receive Date: 20250210
  Receipt Date: 20250210
  Transmission Date: 20250409
  Serious: No
  Sender: MEITHEAL PHARMACEUTICALS
  Company Number: US-MEITHEAL-2024MPSPO00439

PATIENT
  Age: 33 Year
  Sex: Female

DRUGS (2)
  1. CETRORELIX ACETATE [Suspect]
     Active Substance: CETRORELIX ACETATE
     Indication: Oocyte harvest
     Route: 065
     Dates: start: 20241207, end: 20241207
  2. CETRORELIX ACETATE [Suspect]
     Active Substance: CETRORELIX ACETATE

REACTIONS (5)
  - Inappropriate schedule of product administration [Unknown]
  - Product dose omission issue [Unknown]
  - Device breakage [Unknown]
  - Product leakage [Unknown]
  - Product substitution issue [Unknown]

NARRATIVE: CASE EVENT DATE: 20241207
